FAERS Safety Report 23117641 (Version 1)
Quarter: 2023Q4

REPORT INFORMATION
  Report Type: Spontaneous
  Country: US (occurrence: US)
  Receive Date: 20231027
  Receipt Date: 20231027
  Transmission Date: 20240110
  Serious: No
  Sender: FDA-Public Use
  Company Number: US-MERIDIAN MEDICAL TECHNOLOGIES, LLC-2023MMT00008

PATIENT
  Age: 75 Year
  Sex: Female
  Weight: 55.782 kg

DRUGS (10)
  1. MIDAZOLAM [Suspect]
     Active Substance: MIDAZOLAM
     Indication: Cataract operation
     Dosage: UNK UNK, ONCE
     Route: 042
     Dates: start: 20230322, end: 20230322
  2. UNSPECIFIED INGREDIENT [Concomitant]
     Active Substance: UNSPECIFIED INGREDIENT
  3. METOPROLOL [Concomitant]
     Active Substance: METOPROLOL
  4. IMDUR [Concomitant]
     Active Substance: ISOSORBIDE MONONITRATE
  5. RIVAROXABAN [Concomitant]
     Active Substance: RIVAROXABAN
  6. REPATHA [Concomitant]
     Active Substance: EVOLOCUMAB
  7. ATORVASTATIN [Concomitant]
     Active Substance: ATORVASTATIN
  8. ZETIA [Concomitant]
     Active Substance: EZETIMIBE
  9. VITAMIN D NOS [Concomitant]
     Active Substance: VITAMIN D NOS
  10. COENZYME Q10 [Concomitant]
     Active Substance: DIETARY SUPPLEMENT\UBIDECARENONE

REACTIONS (2)
  - Vomiting [Recovered/Resolved]
  - Off label use [Recovered/Resolved]

NARRATIVE: CASE EVENT DATE: 20230322
